FAERS Safety Report 4374730-4 (Version None)
Quarter: 2004Q2

REPORT INFORMATION
  Report Type: 
  Country: None (occurrence: None)
  Receive Date: 20040604
  Receipt Date: 20040525
  Transmission Date: 20050107
  Serious: Yes (Death, Hospitalization)
  Sender: FDA-Public Use
  Company Number: 2004S1000005

PATIENT
  Age: 48 Year
  Sex: Male

DRUGS (23)
  1. OXANDRIN [Suspect]
     Indication: HIV WASTING SYNDROME
     Dosage: 10 MG; BID; PO
     Route: 048
     Dates: start: 20010101, end: 20031009
  2. LEVOTHYROXINE SODIUM [Concomitant]
  3. QUETIAPINE [Concomitant]
  4. BACTRIM [Concomitant]
  5. METHYLPHENIDATE HCL [Concomitant]
  6. VORICONAZOLE [Concomitant]
  7. DOXEPIN HCL [Concomitant]
  8. TESTOSTERONE CIPIONATE [Concomitant]
  9. LOPERAMIDE HCL [Concomitant]
  10. GABAPENTIN [Concomitant]
  11. VALAGANCICLOVIR [Concomitant]
  12. EPIVIR [Concomitant]
  13. TENOFOVIR [Concomitant]
  14. ABACAVIR [Concomitant]
  15. AMBISOME [Concomitant]
  16. HYDROCORTISONE [Concomitant]
  17. FLUDROCORTISONE ACETATE [Concomitant]
  18. OXYCODONE [Concomitant]
  19. ATROPINE SULFATE/DIPHENOXYLATE [Concomitant]
  20. MIRTAZAPINE [Concomitant]
  21. DRONABINOL [Concomitant]
  22. CETIRIZINE HCL [Concomitant]
  23. ESCITALOPRAM OXALATE [Concomitant]

REACTIONS (1)
  - PANCREATITIS [None]
